FAERS Safety Report 17469596 (Version 2)
Quarter: 2020Q2

REPORT INFORMATION
  Report Type: Spontaneous
  Country: US (occurrence: US)
  Receive Date: 20200227
  Receipt Date: 20200403
  Transmission Date: 20200713
  Serious: Yes (Life-Threatening, Hospitalization)
  Sender: FDA-Public Use
  Company Number: US-CELGENEUS-USA-20200209142

PATIENT
  Age: 57 Year
  Sex: Male

DRUGS (24)
  1. INDOMETHACIN. [Concomitant]
     Active Substance: INDOMETHACIN
     Indication: COSTOCHONDRITIS
     Dosage: 75 MILLIGRAM
     Route: 048
     Dates: start: 20191217
  2. ABRAXANE [Suspect]
     Active Substance: PACLITAXEL
     Dosage: 195 MILLIGRAM
     Route: 042
     Dates: start: 20191122, end: 20191122
  3. DURVALUMAB. [Suspect]
     Active Substance: DURVALUMAB
     Indication: NON-SMALL CELL LUNG CANCER
     Dosage: 1500 MILLIGRAM
     Route: 042
     Dates: start: 20191108, end: 20191108
  4. DURVALUMAB. [Suspect]
     Active Substance: DURVALUMAB
     Dosage: 1500 MILLIGRAM
     Route: 042
     Dates: start: 20200120, end: 20200120
  5. XARELTO [Concomitant]
     Active Substance: RIVAROXABAN
     Indication: DEEP VEIN THROMBOSIS
     Dosage: 40 MILLIGRAM
     Route: 048
     Dates: start: 20191220
  6. DURVALUMAB. [Suspect]
     Active Substance: DURVALUMAB
     Dosage: 1500 MILLIGRAM
     Route: 042
     Dates: start: 20191227, end: 20191227
  7. CARBOPLATIN. [Suspect]
     Active Substance: CARBOPLATIN
     Dosage: 557 MILLIGRAM
     Route: 042
     Dates: start: 20191227, end: 20191227
  8. CHLORPHENIRAMINE HYDROCHLORIDE. [Concomitant]
     Active Substance: CHLORPHENIRAMINE HYDROCHLORIDE
     Indication: COUGH
     Dosage: 10 MILLILITER
     Route: 065
     Dates: start: 20191017
  9. ABRAXANE [Suspect]
     Active Substance: PACLITAXEL
     Dosage: 193 MILLIGRAM
     Route: 042
     Dates: start: 20191115, end: 20191115
  10. ABRAXANE [Suspect]
     Active Substance: PACLITAXEL
     Dosage: 192 MILLIGRAM
     Route: 042
     Dates: start: 20200127, end: 20200127
  11. CARBOPLATIN. [Suspect]
     Active Substance: CARBOPLATIN
     Indication: NON-SMALL CELL LUNG CANCER
     Dosage: 651 MILLIGRAM
     Route: 042
     Dates: start: 20191108, end: 20191108
  12. ABRAXANE [Suspect]
     Active Substance: PACLITAXEL
     Dosage: 191 MILLIGRAM
     Route: 042
     Dates: start: 20191227, end: 20191227
  13. ABRAXANE [Suspect]
     Active Substance: PACLITAXEL
     Dosage: 190 MILLIGRAM
     Route: 042
     Dates: start: 20200113, end: 20200113
  14. ABRAXANE [Suspect]
     Active Substance: PACLITAXEL
     Dosage: 191 MILLIGRAM
     Route: 042
     Dates: start: 20200120, end: 20200120
  15. ABRAXANE [Suspect]
     Active Substance: PACLITAXEL
     Dosage: 195 MILLIGRAM
     Route: 042
     Dates: start: 20200203, end: 20200203
  16. TRAMADOL. [Concomitant]
     Active Substance: TRAMADOL
     Indication: CHEST PAIN
     Dosage: 50 MILLIGRAM
     Route: 048
     Dates: start: 20191015
  17. DURVALUMAB. [Suspect]
     Active Substance: DURVALUMAB
     Dosage: 1500 MILLIGRAM
     Route: 042
     Dates: start: 20191206, end: 20191206
  18. REMERON [Concomitant]
     Active Substance: MIRTAZAPINE
     Indication: INSOMNIA
     Dosage: 15 MILLIGRAM
     Route: 048
     Dates: start: 20191010
  19. ABRAXANE [Suspect]
     Active Substance: PACLITAXEL
     Indication: NON-SMALL CELL LUNG CANCER
     Dosage: 191 MILLIGRAM
     Route: 042
     Dates: start: 20191108, end: 20191108
  20. CARBOPLATIN. [Suspect]
     Active Substance: CARBOPLATIN
     Dosage: 630 MILLIGRAM
     Route: 042
     Dates: start: 20191206, end: 20191206
  21. ABRAXANE [Suspect]
     Active Substance: PACLITAXEL
     Dosage: 195 MILLIGRAM
     Route: 042
     Dates: start: 20191206, end: 20191206
  22. ABRAXANE [Suspect]
     Active Substance: PACLITAXEL
     Dosage: 195 MILLIGRAM
     Route: 042
     Dates: start: 20191213, end: 20191213
  23. CARBOPLATIN. [Suspect]
     Active Substance: CARBOPLATIN
     Dosage: 696 MILLIGRAM
     Route: 042
     Dates: start: 20200120, end: 20200120
  24. ANORO ELLIPTA [Concomitant]
     Active Substance: UMECLIDINIUM BROMIDE\VILANTEROL TRIFENATATE
     Indication: EMPHYSEMA
     Dosage: 1 PUFF
     Route: 055
     Dates: start: 20191015

REACTIONS (1)
  - Renal infarct [Recovered/Resolved]

NARRATIVE: CASE EVENT DATE: 20200212
